FAERS Safety Report 5017866-7 (Version None)
Quarter: 2006Q2

REPORT INFORMATION
  Report Type: 
  Country: None (occurrence: None)
  Receive Date: 20060605
  Receipt Date: 20060529
  Transmission Date: 20061013
  Serious: Yes (Hospitalization)
  Sender: FDA-Public Use
  Company Number: 2006SE03001

PATIENT
  Age: 74 Year
  Sex: Male

DRUGS (8)
  1. BLOPRESS [Suspect]
     Indication: HYPERTENSION
     Route: 048
     Dates: start: 20021029, end: 20021104
  2. BLOPRESS [Suspect]
     Route: 048
     Dates: start: 20021105, end: 20060127
  3. PERSANTIN [Concomitant]
     Route: 065
  4. TENORMIN [Concomitant]
     Route: 048
  5. MEILAX [Concomitant]
     Route: 048
  6. ASPIRIN [Concomitant]
     Route: 048
  7. FLUITRAN [Concomitant]
     Route: 048
  8. CETAPRIL [Concomitant]
     Route: 048

REACTIONS (2)
  - INTERSTITIAL LUNG DISEASE [None]
  - IRON DEFICIENCY ANAEMIA [None]
